FAERS Safety Report 9290888 (Version 1)
Quarter: 2013Q2

REPORT INFORMATION
  Report Type: Spontaneous
  Country: GB (occurrence: GB)
  Receive Date: 20130515
  Receipt Date: 20130515
  Transmission Date: 20140414
  Serious: Yes (Other)
  Sender: FDA-Public Use
  Company Number: GB-PFIZER INC-2013146051

PATIENT
  Age: 70 Year
  Sex: Female

DRUGS (4)
  1. COLESTID [Suspect]
     Indication: BLOOD CHOLESTEROL INCREASED
     Dosage: 1 DF SACHET 5G
     Dates: start: 20130222, end: 20130422
  2. THYROXINE [Concomitant]
     Dosage: 75 UG, UNK
  3. PARACETAMOL [Concomitant]
  4. MACROGOL [Concomitant]
     Indication: DIVERTICULITIS
     Dosage: UNK

REACTIONS (2)
  - Tinnitus [Recovered/Resolved]
  - Muscle spasms [Recovered/Resolved]
